FAERS Safety Report 7742273-3 (Version None)
Quarter: 2011Q3

REPORT INFORMATION
  Report Type: 
  Country: None (occurrence: None)
  Receive Date: 20110907
  Receipt Date: 20110907
  Transmission Date: 20111222
  Serious: No
  Sender: FDA-Public Use
  Company Number: None

PATIENT
  Age: 82 Year
  Sex: Male

DRUGS (1)
  1. XELODA [Suspect]
     Dosage: 2000 MG TWICE DAILY PO
     Route: 048
     Dates: start: 20110819, end: 20110830

REACTIONS (1)
  - OEDEMA PERIPHERAL [None]
